FAERS Safety Report 17578012 (Version 6)
Quarter: 2020Q4

REPORT INFORMATION
  Report Type: Spontaneous
  Country: US (occurrence: US)
  Receive Date: 20200324
  Receipt Date: 20201221
  Transmission Date: 20210113
  Serious: No
  Sender: FDA-Public Use
  Company Number: US-PFIZER INC-2020104039

PATIENT
  Age: 60 Year
  Sex: Female

DRUGS (1)
  1. XELJANZ XR [Suspect]
     Active Substance: TOFACITINIB CITRATE
     Indication: RHEUMATOID ARTHRITIS
     Dosage: 11 MG, 1X/DAY
     Route: 048
     Dates: start: 202002

REACTIONS (8)
  - Arthralgia [Recovering/Resolving]
  - Pharyngitis [Unknown]
  - Product dose omission issue [Unknown]
  - Productive cough [Recovered/Resolved]
  - Dysuria [Unknown]
  - Cough [Recovered/Resolved]
  - SARS-CoV-2 test positive [Unknown]
  - Illness [Unknown]

NARRATIVE: CASE EVENT DATE: 2020
